FAERS Safety Report 19519680 (Version 1)
Quarter: 2021Q3

REPORT INFORMATION
  Report Type: Spontaneous
  Country: US (occurrence: US)
  Receive Date: 20210712
  Receipt Date: 20210712
  Transmission Date: 20211014
  Serious: No
  Sender: FDA-Public Use
  Company Number: US-SA-2021SA225375

PATIENT
  Age: 36 Year
  Sex: Male

DRUGS (2)
  1. DUPIXENT [Suspect]
     Active Substance: DUPILUMAB
     Dosage: 300 MG, QOW; THEN 1 PEN EVERY OTHER WEEK THEREAFTER STARTING ON DAY 15
     Route: 058
  2. DUPIXENT [Suspect]
     Active Substance: DUPILUMAB
     Indication: PSORIASIS
     Dosage: 2 DF; INJECT 2 PENS UNDER THE SKIN ON DAY 1
     Route: 058

REACTIONS (2)
  - Product use in unapproved indication [Unknown]
  - Injection site swelling [Unknown]
